FAERS Safety Report 9782705 (Version 1)
Quarter: 2013Q4

REPORT INFORMATION
  Report Type: Report from Study
  Country: BR (occurrence: BR)
  Receive Date: 20131226
  Receipt Date: 20131226
  Transmission Date: 20140711
  Serious: Yes (Other)
  Sender: FDA-Public Use
  Company Number: PHHY2013BR151865

PATIENT
  Sex: Male
  Weight: 112 kg

DRUGS (2)
  1. DIOVAN HCT [Suspect]
     Indication: BLOOD PRESSURE
     Dosage: 1 DF(160 MG VALS/ 12.5 MG HYDRO) IN THE MORNING
     Route: 048
  2. ASPIRINA BAYER [Concomitant]
     Indication: CARDIOVASCULAR DISORDER
     Dosage: 100 MG, UNK

REACTIONS (2)
  - Venous occlusion [Recovered/Resolved]
  - Chest pain [Recovered/Resolved]
